FAERS Safety Report 7433450-X (Version None)
Quarter: 2011Q2

REPORT INFORMATION
  Report Type: 
  Country: None (occurrence: None)
  Receive Date: 20110422
  Receipt Date: 20110408
  Transmission Date: 20111010
  Serious: Yes (Other)
  Sender: FDA-Public Use
  Company Number: US-CELGENEUS-163-21880-11041111

PATIENT
  Sex: Male

DRUGS (9)
  1. GABAPENTIN [Concomitant]
     Route: 065
  2. SIMVASTATIN [Concomitant]
     Route: 065
  3. HYDROCODONE BITARTRATE [Concomitant]
     Route: 065
  4. REVLIMID [Suspect]
     Dosage: 25 MILLIGRAM
     Route: 048
     Dates: start: 20110101
  5. OMEPRAZOLE [Concomitant]
     Route: 065
  6. REVLIMID [Suspect]
     Dosage: 25 MILLIGRAM
     Route: 048
     Dates: start: 20110106, end: 20110126
  7. FINASTERIDE [Concomitant]
     Route: 065
  8. TEMAZEPAM [Concomitant]
     Route: 065
  9. TERAZOSIN [Concomitant]
     Route: 065

REACTIONS (3)
  - ACNE [None]
  - EXCORIATION [None]
  - BURNING SENSATION [None]
